FAERS Safety Report 8276639-2 (Version None)
Quarter: 2012Q2

REPORT INFORMATION
  Report Type: 
  Country: None (occurrence: None)
  Receive Date: 20120412
  Receipt Date: 20120405
  Transmission Date: 20120825
  Serious: Yes (Hospitalization)
  Sender: FDA-Public Use
  Company Number: PHHO2010KR07275

PATIENT
  Weight: 63 kg

DRUGS (5)
  1. TASIGNA [Suspect]
     Dosage: 600 MG, DID
     Route: 048
     Dates: start: 20100322, end: 20100512
  2. TASIGNA [Suspect]
     Dosage: 400 MG, DID
     Route: 048
     Dates: start: 20100519, end: 20100715
  3. TASIGNA [Suspect]
     Dosage: 400 MG, DID
     Route: 048
     Dates: start: 20051102, end: 20100321
  4. TASIGNA [Suspect]
     Dosage: STUDY EOS
     Route: 048
     Dates: start: 20100716, end: 20100812
  5. TASIGNA [Suspect]
     Indication: CHRONIC MYELOID LEUKAEMIA
     Dosage: 800 MG, BID / 2HRS NPO
     Route: 048
     Dates: start: 20051025, end: 20051027

REACTIONS (4)
  - DECREASED APPETITE [None]
  - PARAESTHESIA [None]
  - ASTHENIA [None]
  - PALPITATIONS [None]
